FAERS Safety Report 16679146 (Version 1)
Quarter: 2019Q3

REPORT INFORMATION
  Report Type: Spontaneous
  Country: US (occurrence: US)
  Receive Date: 20190807
  Receipt Date: 20190807
  Transmission Date: 20191004
  Serious: No
  Sender: FDA-Public Use
  Company Number: US-JNJFOC-20190807309

PATIENT
  Sex: Female

DRUGS (2)
  1. SIMPONI ARIA [Suspect]
     Active Substance: GOLIMUMAB
     Indication: PRODUCT USED FOR UNKNOWN INDICATION
     Dosage: UNDER 20 MG WAS ACCIDENTALLY INFUSED?200 MG VIAL/ 50 MG
     Route: 042
  2. SIMPONI ARIA [Suspect]
     Active Substance: GOLIMUMAB
     Dosage: 200 MG DOSE USING 4 VIALS
     Route: 042

REACTIONS (2)
  - Wrong product administered [Unknown]
  - Off label use [Unknown]
